FAERS Safety Report 12220415 (Version 2)
Quarter: 2016Q2

REPORT INFORMATION
  Report Type: Spontaneous
  Country: US (occurrence: US)
  Receive Date: 20160330
  Receipt Date: 20160512
  Transmission Date: 20160815
  Serious: Yes (Other)
  Sender: FDA-Public Use
  Company Number: US-BAYER-2016-060498

PATIENT
  Age: 31 Year
  Sex: Female

DRUGS (1)
  1. BETASERON [Suspect]
     Active Substance: INTERFERON BETA-1B
     Indication: MULTIPLE SCLEROSIS
     Dosage: 0.3 MG, QOD
     Route: 058
     Dates: start: 20111020

REACTIONS (5)
  - Somnolence [None]
  - Pain [None]
  - Muscular weakness [None]
  - Multiple sclerosis relapse [None]
  - Mobility decreased [None]

NARRATIVE: CASE EVENT DATE: 20160426
